FAERS Safety Report 12205022 (Version 1)
Quarter: 2016Q1

REPORT INFORMATION
  Report Type: Spontaneous
  Country: ES (occurrence: ES)
  Receive Date: 20160323
  Receipt Date: 20160323
  Transmission Date: 20160526
  Serious: Yes (Other)
  Sender: FDA-Public Use
  Company Number: ES-CELGENE-ESP-2016032748

PATIENT
  Age: 52 Year
  Sex: Female

DRUGS (1)
  1. THALIDOMIDE [Suspect]
     Active Substance: THALIDOMIDE
     Indication: PLASMA CELL MYELOMA
     Dosage: 50 MILLIGRAM
     Route: 048
     Dates: start: 20160127, end: 20160228

REACTIONS (7)
  - Disturbance in attention [Unknown]
  - Gait disturbance [Unknown]
  - Fatigue [Unknown]
  - Tachycardia [Unknown]
  - Vision blurred [Unknown]
  - Paraesthesia [Unknown]
  - Mental impairment [Unknown]

NARRATIVE: CASE EVENT DATE: 20160228
